FAERS Safety Report 23695514 (Version 1)
Quarter: 2024Q2

REPORT INFORMATION
  Report Type: Spontaneous
  Country: US (occurrence: US)
  Receive Date: 20240402
  Receipt Date: 20240402
  Transmission Date: 20240715
  Serious: Yes (Other)
  Sender: FDA-Public Use
  Company Number: US-OPELLA-2024OHG009772

PATIENT
  Sex: Female

DRUGS (1)
  1. DULCOLAX PINK STIMULANT LAXATIVE [Suspect]
     Active Substance: BISACODYL
     Indication: Product used for unknown indication
     Dosage: COATED TABLET

REACTIONS (2)
  - Gastric ulcer [Unknown]
  - Therapeutic response delayed [Unknown]
